FAERS Safety Report 24605170 (Version 1)
Quarter: 2024Q4

REPORT INFORMATION
  Report Type: Spontaneous
  Country: CH (occurrence: CH)
  Receive Date: 20241111
  Receipt Date: 20241111
  Transmission Date: 20250115
  Serious: Yes (Other)
  Sender: ANI
  Company Number: CH-ANIPHARMA-2024-CH-000045

PATIENT
  Age: 84 Year
  Sex: Female
  Weight: 61.3 kg

DRUGS (14)
  1. CANDESARTAN CILEXETIL AND HYDROCHLOROTHIAZIDE [Suspect]
     Active Substance: CANDESARTAN CILEXETIL\HYDROCHLOROTHIAZIDE
     Indication: Hypertension
     Route: 048
     Dates: start: 202301, end: 20240607
  2. VILANTEROL TRIFENATATE [Concomitant]
     Active Substance: VILANTEROL TRIFENATATE
  3. FLUTICASONE FUROATE [Concomitant]
     Active Substance: FLUTICASONE FUROATE
  4. NITROGLYCERIN [Concomitant]
     Active Substance: NITROGLYCERIN
  5. ONDANSETRON [Concomitant]
     Active Substance: ONDANSETRON
  6. AMLODIPINE MESYLATE [Concomitant]
     Active Substance: AMLODIPINE MESYLATE
  7. MORPHINE [Suspect]
     Active Substance: MORPHINE
     Dates: start: 20240608, end: 20240608
  8. ASPIRIN [Concomitant]
     Active Substance: ASPIRIN
     Dates: end: 202406
  9. ROSUVASTATIN CALCIUM [Concomitant]
     Active Substance: ROSUVASTATIN CALCIUM
  10. NEBIVOLOL HYDROCHLORIDE [Concomitant]
     Active Substance: NEBIVOLOL HYDROCHLORIDE
  11. CHONDROITIN SULFATE (CHICKEN) [Concomitant]
     Active Substance: CHONDROITIN SULFATE (CHICKEN)
  12. POTASSIUM CHLORIDE [Concomitant]
     Active Substance: POTASSIUM CHLORIDE
  13. CALCIUM CARBONATE [Concomitant]
     Active Substance: CALCIUM CARBONATE
  14. MAGNESIUM [Concomitant]
     Active Substance: MAGNESIUM

REACTIONS (3)
  - Hypokalaemia [Unknown]
  - Hyponatraemia [Unknown]
  - Confusional state [Unknown]

NARRATIVE: CASE EVENT DATE: 20220101
